FAERS Safety Report 17772742 (Version 1)
Quarter: 2020Q2

REPORT INFORMATION
  Report Type: Spontaneous
  Country: US (occurrence: US)
  Receive Date: 20200512
  Receipt Date: 20200512
  Transmission Date: 20200714
  Serious: No
  Sender: FDA-Public Use
  Company Number: US-BEH-2020116917

PATIENT
  Age: 37 Year
  Sex: Male
  Weight: 81.63 kg

DRUGS (2)
  1. CORIFACT [Suspect]
     Active Substance: FACTOR XIII CONCENTRATE (HUMAN)
     Indication: FACTOR VIII DEFICIENCY
     Dosage: UNK, QMT
     Route: 042
     Dates: start: 20200227
  2. CORIFACT [Suspect]
     Active Substance: FACTOR XIII CONCENTRATE (HUMAN)
     Dosage: UNK
     Route: 042
     Dates: start: 20200227, end: 20200327

REACTIONS (2)
  - Product dose omission [Unknown]
  - No adverse event [Unknown]
